FAERS Safety Report 17031992 (Version 1)
Quarter: 2019Q4

REPORT INFORMATION
  Report Type: Spontaneous
  Country: US (occurrence: US)
  Receive Date: 20191114
  Receipt Date: 20191114
  Transmission Date: 20200122
  Serious: Yes (Other)
  Sender: FDA-Public Use
  Company Number: US-SHIRE-US201937249

PATIENT
  Sex: Female

DRUGS (2)
  1. VONVENDI [Suspect]
     Active Substance: VON WILLEBRAND FACTOR (RECOMBINANT)
     Indication: PROPHYLAXIS
     Dosage: UNK
     Route: 042
     Dates: start: 2018
  2. VONVENDI [Suspect]
     Active Substance: VON WILLEBRAND FACTOR (RECOMBINANT)
     Dosage: ATLEAST 4 DAYS, AS REQ^D
     Route: 042

REACTIONS (3)
  - Procedural pain [Unknown]
  - Blood disorder [Unknown]
  - Haemorrhage [Recovering/Resolving]
